FAERS Safety Report 4713541-4 (Version None)
Quarter: 2005Q3

REPORT INFORMATION
  Report Type: 
  Country: None (occurrence: None)
  Receive Date: 20050711
  Receipt Date: 20050628
  Transmission Date: 20060218
  Serious: Yes (Other)
  Sender: FDA-Public Use
  Company Number: 2005JP000849

PATIENT
  Age: 23 Year
  Sex: Male
  Weight: 52 kg

DRUGS (5)
  1. PROGRAF(TACROLIMUS) CAPSULE [Suspect]
     Indication: RENAL TRANSPLANT
     Dosage: SEE IMAGE
     Route: 048
     Dates: start: 20050404, end: 20050410
  2. PROGRAF(TACROLIMUS) CAPSULE [Suspect]
     Indication: RENAL TRANSPLANT
     Dosage: SEE IMAGE
     Route: 048
     Dates: start: 20050413
  3. SOLU-MEDROL [Concomitant]
  4. MEDROL [Concomitant]
  5. CELLCEPT [Concomitant]

REACTIONS (8)
  - ANXIETY [None]
  - BLOOD CREATINE PHOSPHOKINASE INCREASED [None]
  - COMPLICATIONS OF TRANSPLANTED KIDNEY [None]
  - HYPERVENTILATION [None]
  - MASKED FACIES [None]
  - MUSCULOSKELETAL STIFFNESS [None]
  - PAIN [None]
  - RENAL TUBULAR ACIDOSIS [None]
